FAERS Safety Report 9935510 (Version 1)
Quarter: 2014Q1

REPORT INFORMATION
  Report Type: Spontaneous
  Country: US (occurrence: US)
  Receive Date: 20140228
  Receipt Date: 20140228
  Transmission Date: 20141002
  Serious: No
  Sender: FDA-Public Use
  Company Number: US-PFIZER INC-2014058800

PATIENT
  Sex: Female

DRUGS (2)
  1. CHANTIX [Suspect]
     Indication: SMOKING CESSATION THERAPY
     Dosage: UNK
  2. CHANTIX [Suspect]
     Dosage: UNK
     Dates: start: 201402

REACTIONS (6)
  - Renal pain [Unknown]
  - Back pain [Unknown]
  - Sleep disorder [Unknown]
  - Insomnia [Unknown]
  - Abnormal dreams [Unknown]
  - Middle insomnia [Unknown]
